FAERS Safety Report 12076321 (Version 1)
Quarter: 2016Q1

REPORT INFORMATION
  Report Type: Spontaneous
  Country: DE (occurrence: DE)
  Receive Date: 20160215
  Receipt Date: 20160215
  Transmission Date: 20160526
  Serious: Yes (Other)
  Sender: FDA-Public Use
  Company Number: DE-BRISTOL-MYERS SQUIBB COMPANY-14748529

PATIENT
  Age: 18 Year
  Sex: Female
  Weight: 59.1 kg

DRUGS (2)
  1. LITALIR [Suspect]
     Active Substance: HYDROXYUREA
     Indication: SICKLE CELL ANAEMIA
     Dosage: 1 DF, UNK
     Route: 048
     Dates: end: 20090812
  2. MEGACILLIN [Suspect]
     Active Substance: PENICILLIN G BENZATHINE
     Indication: SICKLE CELL ANAEMIA
     Dosage: 1 DF, BID
     Route: 065

REACTIONS (3)
  - Transfusion [Unknown]
  - Premature delivery [Unknown]
  - Maternal exposure during pregnancy [Recovered/Resolved]

NARRATIVE: CASE EVENT DATE: 20100219
